FAERS Safety Report 7280392-9 (Version None)
Quarter: 2011Q1

REPORT INFORMATION
  Report Type: 
  Country: None (occurrence: None)
  Receive Date: 20110208
  Receipt Date: 20110203
  Transmission Date: 20110831
  Serious: Yes (Hospitalization)
  Sender: FDA-Public Use
  Company Number: NL-ELI_LILLY_AND_COMPANY-NL201102001317

PATIENT
  Sex: Male

DRUGS (9)
  1. LOSARTAN POTASSIUM [Concomitant]
     Dosage: 100 MG, DAILY (1/D)
  2. PAROXETINE HCL [Concomitant]
     Dosage: 10 MG, DAILY (1/D)
  3. EZETROL [Concomitant]
     Dosage: 10 MG, DAILY (1/D)
  4. EXENATIDE [Suspect]
     Dates: start: 20110101
  5. METFORMIN HCL [Concomitant]
     Dosage: 1000 MG, 2/D
  6. DOXAZOSINE MERCK [Concomitant]
     Dosage: 4 MG, DAILY (1/D)
  7. ACENOCOUMAROL [Concomitant]
  8. METOPROLOL TARTRATE [Concomitant]
     Dosage: 100 MG, DAILY (1/D)
  9. LEVITRA [Concomitant]
     Dosage: UNK, AS NEEDED

REACTIONS (2)
  - SEPSIS [None]
  - DIABETES MELLITUS INADEQUATE CONTROL [None]
